FAERS Safety Report 7992529-4 (Version None)
Quarter: 2011Q4

REPORT INFORMATION
  Report Type: 
  Country: None (occurrence: None)
  Receive Date: 20111219
  Receipt Date: 20111207
  Transmission Date: 20120403
  Serious: Yes (Hospitalization)
  Sender: FDA-Public Use
  Company Number: JP-PFIZER INC-2011239414

PATIENT
  Age: 62 Year
  Sex: Female

DRUGS (21)
  1. FILDESIN [Suspect]
     Indication: ADULT T-CELL LYMPHOMA/LEUKAEMIA
     Dosage: 2.4 MG/M2 X 1/4WEEK
     Route: 042
     Dates: start: 20110214
  2. PREDNISOLONE [Suspect]
     Indication: ADULT T-CELL LYMPHOMA/LEUKAEMIA
     Dosage: 40 MG/M2 X 1/4WEEK
     Route: 048
     Dates: start: 20110214
  3. KW-0761 [Suspect]
     Indication: ADULT T-CELL LYMPHOMA/LEUKAEMIA
     Dosage: 1 MG/KG, UNK
     Route: 041
     Dates: start: 20110215, end: 20110701
  4. ONCOVIN [Suspect]
     Indication: ADULT T-CELL LYMPHOMA/LEUKAEMIA
     Dosage: 1 MG/M2 X 1/4WEEK
     Route: 042
     Dates: start: 20110214
  5. FILDESIN [Suspect]
     Dosage: INTRASPINAL VCAP ADMINISTRATION
     Dates: start: 20110319
  6. PREDNISOLONE [Suspect]
     Dosage: INTRASPINAL VCAP ADMINISTRATION
     Dates: start: 20110319
  7. FLUCONAZOLE [Suspect]
     Indication: FUNGAL INFECTION
     Dosage: 100 MG, 1X/DAY
     Route: 048
  8. ALPRAZOLAM [Suspect]
     Indication: ANXIETY
     Dosage: 0.4 MG, 2X/DAY
     Route: 048
  9. RABEPRAZOLE SODIUM [Suspect]
     Indication: PROPHYLAXIS AGAINST GASTROINTESTINAL ULCER
     Dosage: 10 MG, 1X/DAY
     Route: 048
  10. CYCLOPHOSPHAMIDE [Suspect]
     Indication: ADULT T-CELL LYMPHOMA/LEUKAEMIA
     Dosage: 350 MG/M2 X 1/4WEEK
     Route: 041
     Dates: start: 20110214
  11. CYCLOPHOSPHAMIDE [Suspect]
     Dosage: INTRASPINAL VCAP ADMINISTRATION
     Dates: start: 20110319
  12. ONCOVIN [Suspect]
     Dosage: INTRASPINAL VCAP ADMINISTRATION
     Dates: start: 20110319
  13. SULFAMETHOXAZOLE AND TRIMETHOPRIM [Suspect]
     Indication: PNEUMOCYSTIS JIROVECI PNEUMONIA
     Dosage: 1 G, 1X/DAY
     Route: 048
  14. LOXOPROFEN [Suspect]
     Indication: PYREXIA
     Dosage: 40 MG, UNK
     Route: 048
     Dates: start: 20110805
  15. ETOPOSIDE [Suspect]
     Indication: ADULT T-CELL LYMPHOMA/LEUKAEMIA
     Dosage: 100 MG/M2 X 1/4WEEK
     Route: 041
     Dates: start: 20110305
  16. ATENOLOL [Suspect]
     Indication: HYPERTENSION
     Dosage: 50 MG, 1X/DAY
     Route: 048
     Dates: start: 20110722
  17. FUROSEMIDE [Suspect]
     Indication: OEDEMA
     Dosage: 40 MG, 1X/DAY
     Route: 048
     Dates: start: 20110804
  18. DOXORUBICIN HCL [Suspect]
     Indication: ADULT T-CELL LYMPHOMA/LEUKAEMIA
     Dosage: 40 MG/M2 X 1/4WEEK
     Route: 041
     Dates: start: 20110214
  19. CYMERIN [Suspect]
     Indication: ADULT T-CELL LYMPHOMA/LEUKAEMIA
     Dosage: 60 MG/M2 X 1/4WEEK
     Route: 041
     Dates: start: 20110221
  20. CARBOPLATIN [Suspect]
     Indication: ADULT T-CELL LYMPHOMA/LEUKAEMIA
     Dosage: 250 MG/M2 X 1/4WEEK
     Route: 041
     Dates: start: 20110305
  21. ALENDRONATE SODIUM [Suspect]
     Indication: OSTEOPOROSIS
     Dosage: 35 MG, WEEKLY
     Route: 048

REACTIONS (1)
  - DRY SKIN [None]
